FAERS Safety Report 17257312 (Version 1)
Quarter: 2020Q1

REPORT INFORMATION
  Report Type: Spontaneous
  Country: US (occurrence: US)
  Receive Date: 20200110
  Receipt Date: 20200110
  Transmission Date: 20200409
  Serious: No
  Sender: FDA-Public Use
  Company Number: US-PFIZER INC-2017291155

PATIENT
  Age: 33 Year
  Sex: Male

DRUGS (3)
  1. GEODON [Interacting]
     Active Substance: ZIPRASIDONE HYDROCHLORIDE\ZIPRASIDONE MESYLATE
     Dosage: 2X/DAY (20 MG IN THE MORNING, 80 MG IN THE EVENING)
     Dates: start: 2018
  2. CARBAMAZEPINE. [Interacting]
     Active Substance: CARBAMAZEPINE
     Indication: MENTAL DISORDER
     Dosage: 300 MG, 1X/DAY (AT NIGHT)
     Dates: start: 20170621
  3. GEODON [Suspect]
     Active Substance: ZIPRASIDONE HYDROCHLORIDE\ZIPRASIDONE MESYLATE
     Indication: MENTAL DISORDER
     Dosage: 2X/DAY (40 MG IN MORNING, 100 MG AT NIGHT)
     Dates: start: 20170621

REACTIONS (3)
  - Off label use [Unknown]
  - Drug interaction [Unknown]
  - Product use in unapproved indication [Unknown]

NARRATIVE: CASE EVENT DATE: 20170621
